FAERS Safety Report 5581674-9 (Version None)
Quarter: 2008Q1

REPORT INFORMATION
  Report Type: 
  Country: None (occurrence: None)
  Receive Date: 20080104
  Receipt Date: 20080102
  Transmission Date: 20080703
  Serious: Yes (Other)
  Sender: FDA-Public Use
  Company Number: TR-ASTRAZENECA-2008SE00041

PATIENT
  Age: 39 Year
  Sex: Male

DRUGS (6)
  1. SYMBICORT FORTE [Suspect]
     Indication: ASTHMA
     Dosage: 320/9 UG 1 INHALATION BID
     Route: 055
     Dates: start: 20071224, end: 20071231
  2. TAVANIC [Concomitant]
     Indication: BRONCHITIS
     Route: 048
     Dates: start: 20071224, end: 20071229
  3. ENFEXIA [Concomitant]
     Indication: BRONCHITIS
     Route: 048
     Dates: start: 20071229
  4. DIAMICRON MR [Concomitant]
     Indication: DIABETES MELLITUS
     Route: 048
  5. GLUCOPHAGE [Concomitant]
     Indication: DIABETES MELLITUS
     Route: 048
  6. PRITOR PLUS [Concomitant]
     Indication: HYPERTENSION
     Route: 048

REACTIONS (5)
  - CHEST DISCOMFORT [None]
  - DYSPNOEA [None]
  - MUSCLE SPASMS [None]
  - SLEEP DISORDER [None]
  - TREMOR [None]
